FAERS Safety Report 8545063-7 (Version None)
Quarter: 2012Q3

REPORT INFORMATION
  Report Type: 
  Country: None (occurrence: None)
  Receive Date: 20120727
  Receipt Date: 20120725
  Transmission Date: 20120928
  Serious: Yes (Other)
  Sender: FDA-Public Use
  Company Number: CA-JNJFOC-20120712423

PATIENT
  Sex: Male

DRUGS (6)
  1. SIMPONI [Suspect]
     Route: 058
     Dates: start: 20120712
  2. SIMPONI [Suspect]
     Indication: RHEUMATOID ARTHRITIS
     Route: 058
     Dates: start: 20120412
  3. SULFASALAZINE [Concomitant]
  4. PREDNISONE [Concomitant]
     Dates: end: 20120705
  5. PLAQUENIL [Concomitant]
  6. PREDNISONE [Concomitant]
     Dates: start: 20120725

REACTIONS (3)
  - INSOMNIA [None]
  - DRUG EFFECT DECREASED [None]
  - RECTAL HAEMORRHAGE [None]
